FAERS Safety Report 13498153 (Version 1)
Quarter: 2017Q2

REPORT INFORMATION
  Report Type: Report from Study
  Country: CA (occurrence: CA)
  Receive Date: 20170501
  Receipt Date: 20170501
  Transmission Date: 20170830
  Serious: Yes (Other)
  Sender: FDA-Public Use
  Company Number: CA-ROCHE-1898369

PATIENT
  Sex: Female

DRUGS (6)
  1. RITUXAN [Suspect]
     Active Substance: RITUXIMAB
     Indication: RHEUMATOID ARTHRITIS
     Route: 042
     Dates: start: 20170209, end: 2017
  2. NAPROXEN. [Concomitant]
     Active Substance: NAPROXEN
  3. FOLIC ACID. [Concomitant]
     Active Substance: FOLIC ACID
  4. VISANNE [Concomitant]
     Active Substance: DIENOGEST
  5. METHOTREXATE. [Concomitant]
     Active Substance: METHOTREXATE
  6. PREDNISONE. [Concomitant]
     Active Substance: PREDNISONE

REACTIONS (3)
  - Sluggishness [Unknown]
  - Depression [Unknown]
  - Vomiting [Unknown]
